FAERS Safety Report 19761813 (Version 3)
Quarter: 2021Q4

REPORT INFORMATION
  Report Type: Spontaneous
  Country: CN (occurrence: CN)
  Receive Date: 20210830
  Receipt Date: 20211013
  Transmission Date: 20220303
  Serious: Yes (Other)
  Sender: FDA-Public Use
  Company Number: NVSC2021CN193415

PATIENT
  Sex: Male

DRUGS (1)
  1. GLYCOPYRRONIUM\INDACATEROL [Suspect]
     Active Substance: GLYCOPYRRONIUM\INDACATEROL
     Indication: Respiratory disorder
     Dosage: 110 UG AND 50 UG CAPSULE FOR POWDER FOR INHALATION 30 CAPSULES/BOX
     Route: 055
     Dates: start: 2021

REACTIONS (2)
  - Choking [Recovered/Resolved]
  - Product physical issue [Recovered/Resolved]

NARRATIVE: CASE EVENT DATE: 20210101
